FAERS Safety Report 21174580 (Version 1)
Quarter: 2022Q3

REPORT INFORMATION
  Report Type: Spontaneous
  Country: US (occurrence: None)
  Receive Date: 20220805
  Receipt Date: 20220805
  Transmission Date: 20221027
  Serious: No
  Sender: FDA-Public Use
  Company Number: US-ROCHE-2910174

PATIENT
  Age: 81 Year
  Sex: Female
  Weight: 53.390 kg

DRUGS (16)
  1. BONIVA [Suspect]
     Active Substance: IBANDRONATE SODIUM
     Indication: Osteopenia
     Dosage: TAKE ON EMPTY STOMACH ;ONGOING: NO
     Route: 048
     Dates: start: 20210709
  2. IMODIUM [Concomitant]
     Active Substance: LOPERAMIDE HYDROCHLORIDE
     Indication: Diarrhoea
     Dosage: TAKES AS NEEDED. ONGOING-YES
     Route: 048
     Dates: start: 202108
  3. PEPTO-BISMOL [Concomitant]
     Active Substance: BISMUTH SUBSALICYLATE
     Indication: Nausea
     Dosage: TAKES 1-2 TABLETS AS NEEDED, ONGOING-YES
     Route: 048
     Dates: start: 202108
  4. EVISTA [Concomitant]
     Active Substance: RALOXIFENE HYDROCHLORIDE
     Indication: Hormone replacement therapy
     Dosage: TAKES AT NIGHT; STARTED 30-40 YEARS AGO, ONGOING-YES
     Route: 048
  5. SOMA [Concomitant]
     Active Substance: CARISOPRODOL
     Indication: Pain
     Dosage: TAKES 1/2 TABLET AS NEEDED; STARTED ABOUT 6 YEARS AGO, ONGOING-YES
     Route: 048
  6. RESTASIS [Concomitant]
     Active Substance: CYCLOSPORINE
     Indication: Dry eye
     Dosage: IN EACH EYE; STARTED ABOUT 10 YEARS AGO, ONGOING-YES
     Route: 047
  7. FLUTICASONE [Concomitant]
     Active Substance: FLUTICASONE
     Dosage: 2 SPRAYS EACH NOSTRIL EVERY MORNING; STARTED ABOUT 8 YEARS AGO, ONGOING-YES
     Route: 045
  8. ZYRTEC [Concomitant]
     Active Substance: CETIRIZINE HYDROCHLORIDE
     Dosage: TAKES AT NIGHT; STARTED 8-10 YEARS AGO, ONGOING-YES
     Route: 048
  9. CALCIUM CITRATE PLUS [Concomitant]
     Dosage: D3 20 MCG, B6 10 MG, MAGNESIUM 80 MG, ZINC 10 MG, COPPER 1 MG, MANGANESE 1 MG, BORON 1 MG;    ONGOIN
     Route: 048
  10. VITAMIN D3 [Concomitant]
     Active Substance: CHOLECALCIFEROL
     Dosage: STARTED 25 YEARS AGO, ONGOING-YES
     Route: 048
  11. LUTEIN-ZEAXANTHIN [Concomitant]
     Dosage: PLUS ZEAXANTHIN 800 MCG; STARTED ABOUT 6 YEARS AGO, ONGOING-YES
     Route: 048
  12. KRILL OIL [Concomitant]
     Active Substance: DIETARY SUPPLEMENT\KRILL OIL
     Indication: Cardiac disorder
     Dosage: STARTED ABOUT 5 YEARS AGO, ONGOING-YES
     Route: 048
  13. GARLIC [Concomitant]
     Active Substance: GARLIC
     Dosage: STARTED ABOUT 10 YEARS AGO, ONGOING-YES
     Route: 048
  14. HERBALS\PLANTAGO OVATA SEED COAT [Concomitant]
     Active Substance: HERBALS\PLANTAGO OVATA SEED COAT
     Dosage: STARTED ABOUT 30 YEARS AGO, ONGOING-YES
     Route: 048
  15. HERBALS\SAW PALMETTO [Concomitant]
     Active Substance: HERBALS\SAW PALMETTO
     Indication: Alopecia
     Route: 048
     Dates: start: 202106
  16. FLONASE [Concomitant]
     Active Substance: FLUTICASONE PROPIONATE

REACTIONS (7)
  - Nausea [Not Recovered/Not Resolved]
  - Abdominal pain [Not Recovered/Not Resolved]
  - Retching [Recovered/Resolved]
  - Diarrhoea [Not Recovered/Not Resolved]
  - Eating disorder [Not Recovered/Not Resolved]
  - Feeling abnormal [Unknown]
  - Discomfort [Recovered/Resolved]

NARRATIVE: CASE EVENT DATE: 20210709
